FAERS Safety Report 9414376 (Version 1)
Quarter: 2013Q3

REPORT INFORMATION
  Report Type: Spontaneous
  Country: BR (occurrence: BR)
  Receive Date: 20130723
  Receipt Date: 20130723
  Transmission Date: 20140515
  Serious: Yes (Hospitalization, Other)
  Sender: FDA-Public Use
  Company Number: PHHY2013BR063320

PATIENT
  Age: 55 Year
  Sex: Female

DRUGS (2)
  1. LEPONEX [Suspect]
     Indication: SCHIZOPHRENIA
     Dosage: 2 DF, TID (2 DF IN THE MORNING, IN THE AFTERNOON AND AT NIGHT, DAILY)
     Route: 048
     Dates: start: 1998, end: 2008
  2. CLOZAPINE [Suspect]
     Dosage: 6 DF, UNK
     Route: 048
     Dates: start: 2008

REACTIONS (13)
  - Schizophrenia [Recovering/Resolving]
  - Hallucination, auditory [Not Recovered/Not Resolved]
  - Decreased interest [Not Recovered/Not Resolved]
  - Psychotic disorder [Unknown]
  - Eating disorder [Recovering/Resolving]
  - Sedation [Unknown]
  - Yellow skin [Recovered/Resolved]
  - Crying [Not Recovered/Not Resolved]
  - Screaming [Not Recovered/Not Resolved]
  - Nervousness [Recovered/Resolved]
  - Weight increased [Not Recovered/Not Resolved]
  - Agitation [Recovered/Resolved]
  - Headache [Recovered/Resolved]
